FAERS Safety Report 25367851 (Version 1)
Quarter: 2025Q2

REPORT INFORMATION
  Report Type: Spontaneous
  Country: US (occurrence: None)
  Receive Date: 20250527
  Receipt Date: 20250527
  Transmission Date: 20250716
  Serious: No
  Sender: FDA-CTU
  Company Number: None

PATIENT
  Age: 76 Year
  Sex: Male

DRUGS (1)
  1. EBGLYSS [Suspect]
     Active Substance: LEBRIKIZUMAB-LBKZ
     Indication: Neurodermatitis
     Dosage: OTHER QUANTITY : 250MG (1 PEN);?FREQUENCY : EVERY OTHER WEEK;?
     Route: 058
     Dates: start: 202503

REACTIONS (1)
  - Localised infection [None]
